FAERS Safety Report 10447652 (Version 1)
Quarter: 2014Q3

REPORT INFORMATION
  Report Type: Report from Study
  Country: BR (occurrence: BR)
  Receive Date: 20140911
  Receipt Date: 20140911
  Transmission Date: 20150326
  Serious: Yes (Other)
  Sender: FDA-Public Use
  Company Number: BR-ABBVIE-14K-020-1280855-00

PATIENT
  Age: 57 Year
  Sex: Female
  Weight: 58 kg

DRUGS (2)
  1. HUMIRA [Suspect]
     Active Substance: ADALIMUMAB
     Route: 058
  2. HUMIRA [Suspect]
     Active Substance: ADALIMUMAB
     Indication: RHEUMATOID ARTHRITIS
     Dosage: UNSPECIFIED INDUCTION DOSE
     Route: 058
     Dates: start: 20110911, end: 20110911

REACTIONS (14)
  - Pain in extremity [Recovered/Resolved]
  - Arthralgia [Not Recovered/Not Resolved]
  - Injection site haemorrhage [Recovered/Resolved]
  - Hyperaesthesia [Not Recovered/Not Resolved]
  - Injection site pain [Not Recovered/Not Resolved]
  - Road traffic accident [Recovered/Resolved]
  - Limb injury [Recovered/Resolved]
  - Hyperkeratosis [Not Recovered/Not Resolved]
  - Benign breast neoplasm [Unknown]
  - Arthralgia [Not Recovered/Not Resolved]
  - Cataract [Recovered/Resolved]
  - Agitation [Unknown]
  - Syncope [Recovered/Resolved]
  - Breast pain [Not Recovered/Not Resolved]

NARRATIVE: CASE EVENT DATE: 20110911
